FAERS Safety Report 10510114 (Version 1)
Quarter: 2014Q4

REPORT INFORMATION
  Report Type: Spontaneous
  Country: US (occurrence: None)
  Receive Date: 20141009
  Receipt Date: 20141009
  Transmission Date: 20150528
  Serious: Yes (Death, Hospitalization)
  Sender: FDA-Public Use
  Company Number: None

PATIENT
  Age: 60 Year
  Sex: Female
  Weight: 63.5 kg

DRUGS (1)
  1. RECLAST [Suspect]
     Active Substance: ZOLEDRONIC ACID
     Indication: OSTEOPOROSIS

REACTIONS (11)
  - Rectal haemorrhage [None]
  - Gastrointestinal haemorrhage [None]
  - Haemoglobin decreased [None]
  - Haematemesis [None]
  - Urinary tract infection [None]
  - Nausea [None]
  - Blood sodium decreased [None]
  - Dialysis [None]
  - Haematocrit decreased [None]
  - Acute kidney injury [None]
  - Abdominal pain [None]

NARRATIVE: CASE EVENT DATE: 20140306
